FAERS Safety Report 4734621-3 (Version None)
Quarter: 2005Q3

REPORT INFORMATION
  Report Type: 
  Country: None (occurrence: None)
  Receive Date: 20050729
  Receipt Date: 20050726
  Transmission Date: 20060218
  Serious: Yes (Other)
  Sender: FDA-Public Use
  Company Number: 2005-06-2240

PATIENT
  Age: 64 Year
  Sex: Female
  Weight: 58.0604 kg

DRUGS (4)
  1. CLARITIN-D [Suspect]
     Indication: LACRIMATION INCREASED
     Dosage: 1 TAB ORAL
     Route: 048
     Dates: start: 20050620, end: 20050620
  2. CLARITIN-D [Suspect]
     Indication: SNEEZING
     Dosage: 1 TAB ORAL
     Route: 048
     Dates: start: 20050620, end: 20050620
  3. DILANTIN [Concomitant]
  4. CELEXA [Concomitant]

REACTIONS (4)
  - CHILLS [None]
  - EPILEPSY [None]
  - HYPERHIDROSIS [None]
  - PARAESTHESIA [None]
